FAERS Safety Report 6433114-5 (Version None)
Quarter: 2009Q4

REPORT INFORMATION
  Report Type: 
  Country: None (occurrence: None)
  Receive Date: 20091109
  Receipt Date: 20091028
  Transmission Date: 20100525
  Serious: No
  Sender: FDA-Public Use
  Company Number: US-B.I. PHARMACEUTICALS,INC./RIDGEFIELD-2009-BP-12537BP

PATIENT
  Age: 65 Year
  Sex: Male

DRUGS (5)
  1. FLOMAX [Suspect]
     Indication: PROSTATOMEGALY
     Dosage: 0.4 MG
     Route: 048
     Dates: start: 20091016
  2. GLYBURIDE [Concomitant]
     Indication: DIABETES MELLITUS
     Dates: start: 20060101
  3. METFORMIN HCL [Concomitant]
     Indication: DIABETES MELLITUS
  4. VYTORIN [Concomitant]
     Indication: BLOOD CHOLESTEROL INCREASED
  5. LISINOPRIL [Concomitant]
     Indication: HYPERTENSION

REACTIONS (1)
  - ARTHRITIS [None]
